FAERS Safety Report 4752374-X (Version None)
Quarter: 2005Q3

REPORT INFORMATION
  Report Type: 
  Country: None (occurrence: None)
  Receive Date: 20050823
  Receipt Date: 20050815
  Transmission Date: 20060218
  Serious: Yes (Hospitalization)
  Sender: FDA-Public Use
  Company Number: A044-002-005711

PATIENT
  Age: 77 Year
  Sex: Male

DRUGS (3)
  1. ARICEPT [Suspect]
     Indication: DEMENTIA ALZHEIMER'S TYPE
     Dosage: 10 MG, 1 IN 1 D, ORAL
     Route: 048
     Dates: start: 20040101
  2. NIFEDIPINE [Concomitant]
  3. TAMSULOSIN HCL [Concomitant]

REACTIONS (4)
  - AORTIC VALVE STENOSIS [None]
  - ATRIOVENTRICULAR BLOCK SECOND DEGREE [None]
  - ORTHOSTATIC HYPOTENSION [None]
  - SYNCOPE [None]
